FAERS Safety Report 7884335-6 (Version None)
Quarter: 2011Q4

REPORT INFORMATION
  Report Type: 
  Country: None (occurrence: None)
  Receive Date: 20111102
  Receipt Date: 20111017
  Transmission Date: 20120403
  Serious: Yes (Death, Life-Threatening, Hospitalization, Other)
  Sender: FDA-Public Use
  Company Number: CA-ROCHE-1005361

PATIENT
  Age: 63 Year
  Sex: Male

DRUGS (2)
  1. PLAVIX [Suspect]
     Indication: ANGIOPATHY
     Route: 065
  2. XELODA [Suspect]
     Indication: COLON CANCER STAGE II
     Route: 048
     Dates: start: 20101102, end: 20101106

REACTIONS (16)
  - GASTROINTESTINAL HAEMORRHAGE [None]
  - DEPRESSED LEVEL OF CONSCIOUSNESS [None]
  - DIARRHOEA [None]
  - PALMAR-PLANTAR ERYTHRODYSAESTHESIA SYNDROME [None]
  - NEUTROPENIA [None]
  - PLATELET COUNT DECREASED [None]
  - HAEMATEMESIS [None]
  - STOMATITIS [None]
  - PAIN [None]
  - RENAL FAILURE [None]
  - CARDIAC ARREST [None]
  - DEHYDRATION [None]
  - DIHYDROPYRIMIDINE DEHYDROGENASE DEFICIENCY [None]
  - HYPOTENSION [None]
  - CONSTIPATION [None]
  - PULMONARY OEDEMA [None]
